FAERS Safety Report 20866368 (Version 1)
Quarter: 2022Q2

REPORT INFORMATION
  Report Type: Spontaneous
  Country: JP (occurrence: JP)
  Receive Date: 20220524
  Receipt Date: 20220524
  Transmission Date: 20220720
  Serious: Yes (Hospitalization, Other)
  Sender: FDA-Public Use
  Company Number: JP-PBT-004652

PATIENT
  Age: 59 Year
  Sex: Female

DRUGS (4)
  1. TACROLIMUS [Suspect]
     Active Substance: TACROLIMUS
     Indication: Prophylaxis against transplant rejection
     Route: 065
  2. MYCOPHENOLATE MOFETIL [Suspect]
     Active Substance: MYCOPHENOLATE MOFETIL
     Indication: Prophylaxis against transplant rejection
     Route: 065
  3. PIPERACILLIN [Concomitant]
     Active Substance: PIPERACILLIN
     Indication: Infection prophylaxis
     Route: 065
  4. CEFOTAXIME [Concomitant]
     Active Substance: CEFOTAXIME SODIUM
     Indication: Infection prophylaxis
     Route: 065

REACTIONS (3)
  - Transplant rejection [Recovered/Resolved]
  - Transplant rejection [Recovered/Resolved]
  - Thrombocytopenia [Unknown]
